FAERS Safety Report 5300011-8 (Version None)
Quarter: 2007Q2

REPORT INFORMATION
  Report Type: 
  Country: None (occurrence: None)
  Receive Date: 20070410
  Receipt Date: 20070328
  Transmission Date: 20071010
  Serious: Yes (Other)
  Sender: FDA-Public Use
  Company Number: B0464652A

PATIENT
  Age: 57 Year
  Sex: Male

DRUGS (6)
  1. EPIVIR-HBV [Suspect]
     Indication: HEPATIC CIRRHOSIS
     Dosage: 100 MG / PER DAY / ORAL
     Route: 048
     Dates: start: 20030424
  2. URSODIOL [Concomitant]
  3. RANITIDINE HYDROCHLORIDE [Concomitant]
  4. FRUSEMIDE [Concomitant]
  5. SPIRONOLACTONE [Concomitant]
  6. PROTEIN SUPPLEMENT [Concomitant]

REACTIONS (2)
  - CONDITION AGGRAVATED [None]
  - HEPATITIS B [None]
